FAERS Safety Report 11730944 (Version 1)
Quarter: 2015Q4

REPORT INFORMATION
  Report Type: Spontaneous
  Country: US (occurrence: US)
  Receive Date: 20151110
  Receipt Date: 20151110
  Transmission Date: 20160304
  Serious: No
  Sender: FDA-Public Use
  Company Number: US-ELI_LILLY_AND_COMPANY-US201202006476

PATIENT
  Sex: Female

DRUGS (1)
  1. FORTEO [Suspect]
     Active Substance: TERIPARATIDE
     Indication: OSTEOPOROSIS
     Dosage: 20 UG, QD
     Route: 065
     Dates: end: 201202

REACTIONS (6)
  - Asthenia [Unknown]
  - Muscle spasms [Not Recovered/Not Resolved]
  - Pain in extremity [Recovered/Resolved]
  - Balance disorder [Not Recovered/Not Resolved]
  - Limb discomfort [Unknown]
  - Intentional product misuse [Unknown]
